FAERS Safety Report 8507379-X (Version None)
Quarter: 2012Q3

REPORT INFORMATION
  Report Type: 
  Country: None (occurrence: None)
  Receive Date: 20120712
  Receipt Date: 20120706
  Transmission Date: 20120928
  Serious: Yes (Other)
  Sender: FDA-Public Use
  Company Number: BR-ROCHE-1084795

PATIENT
  Sex: Male

DRUGS (5)
  1. XOLAIR [Suspect]
     Indication: HYPERSENSITIVITY
  2. MAXSULID [Concomitant]
  3. BUDESONIDE [Suspect]
     Indication: CHRONIC OBSTRUCTIVE PULMONARY DISEASE
     Dosage: 12/400 MCG
  4. BEROTEC [Concomitant]
  5. COMBIVENT [Concomitant]

REACTIONS (7)
  - ASTHMA [None]
  - PLEURITIC PAIN [None]
  - ANOSMIA [None]
  - BRONCHITIS [None]
  - BACK PAIN [None]
  - EMPHYSEMA [None]
  - HYPERSENSITIVITY [None]
